FAERS Safety Report 4999250-5 (Version None)
Quarter: 2006Q2

REPORT INFORMATION
  Report Type: 
  Country: None (occurrence: None)
  Receive Date: 20060509
  Receipt Date: 20060427
  Transmission Date: 20061013
  Serious: Yes (Hospitalization, Other)
  Sender: FDA-Public Use
  Company Number: US200604004757

PATIENT
  Sex: Female

DRUGS (7)
  1. EVISTA [Suspect]
     Indication: OSTEOPOROSIS
     Dosage: 60 MG,
  2. NEXIUM [Concomitant]
  3. METOPROLOL SUCCINATE [Concomitant]
  4. HYDROCHLOROTHIAZIDE [Concomitant]
  5. CALCIUM (CALCIUM) [Concomitant]
  6. VITAMINS [Concomitant]
  7. AMITRIPTYLINE (AMITRIPTYLINE) [Concomitant]

REACTIONS (7)
  - DRUG INEFFECTIVE [None]
  - HIP FRACTURE [None]
  - PRURITUS [None]
  - RASH [None]
  - SCAB [None]
  - SCRATCH [None]
  - SKIN ULCER [None]
